FAERS Safety Report 11994725 (Version 1)
Quarter: 2016Q1

REPORT INFORMATION
  Report Type: Spontaneous
  Country: US (occurrence: US)
  Receive Date: 20160203
  Receipt Date: 20160203
  Transmission Date: 20160526
  Serious: No
  Sender: FDA-Public Use
  Company Number: US-BEH-2014046379

PATIENT
  Age: 14 Year
  Sex: Male

DRUGS (2)
  1. ALBUMINAR [Suspect]
     Active Substance: ALBUMIN (HUMAN)
     Dosage: 06-NOV-2014
  2. ALBUMINAR [Suspect]
     Active Substance: ALBUMIN (HUMAN)
     Dosage: 06-NOV-2014

REACTIONS (3)
  - Lip swelling [Unknown]
  - Erythema [Unknown]
  - Erythema [Recovered/Resolved]

NARRATIVE: CASE EVENT DATE: 20141022
